FAERS Safety Report 22099536 (Version 1)
Quarter: 2023Q1

REPORT INFORMATION
  Report Type: Spontaneous
  Country: RO (occurrence: RO)
  Receive Date: 20230315
  Receipt Date: 20230315
  Transmission Date: 20230418
  Serious: Yes (Other)
  Sender: FDA-Public Use
  Company Number: None

PATIENT
  Age: 69 Year
  Sex: Male
  Weight: 74 kg

DRUGS (4)
  1. HUMIRA [Suspect]
     Active Substance: ADALIMUMAB
     Indication: Ankylosing spondylitis
     Dosage: 40 MG INJECTABLE SC EVERY 2 WEEKS
     Route: 058
     Dates: start: 20130801, end: 20230222
  2. ZALDIAR [Concomitant]
     Active Substance: ACETAMINOPHEN\TRAMADOL HYDROCHLORIDE
     Indication: Ankylosing spondylitis
     Dosage: 1 TB WHEN NEEDED
     Route: 048
     Dates: start: 20220908
  3. CELEBREX [Concomitant]
     Active Substance: CELECOXIB
     Indication: Ankylosing spondylitis
     Dosage: 1 TB WHEN NEEDED
     Route: 048
     Dates: start: 20220908
  4. Omez 20 MG [Concomitant]
     Indication: Prophylaxis against gastrointestinal ulcer
     Dosage: 1 CPS IN THE DAYS WHEN CELEBREX IS ADMINISTERED
     Route: 048
     Dates: start: 20220908

REACTIONS (1)
  - Hepatitis B reactivation [Recovering/Resolving]

NARRATIVE: CASE EVENT DATE: 20230209
